FAERS Safety Report 5212559-5 (Version None)
Quarter: 2007Q1

REPORT INFORMATION
  Report Type: 
  Country: None (occurrence: None)
  Receive Date: 20070118
  Receipt Date: 20070110
  Transmission Date: 20070707
  Serious: Yes (Hospitalization)
  Sender: FDA-Public Use
  Company Number: JP-MERCK-0612USA03577

PATIENT
  Age: 85 Year
  Sex: Female

DRUGS (3)
  1. PEPCID [Suspect]
     Route: 042
     Dates: start: 20061127, end: 20061206
  2. PEPCID RPD [Suspect]
     Route: 048
     Dates: start: 20061207, end: 20061213
  3. URSO [Concomitant]
     Route: 048
     Dates: start: 20061207

REACTIONS (1)
  - GRANULOCYTE COUNT DECREASED [None]
